FAERS Safety Report 9842413 (Version 2)
Quarter: 2014Q1

REPORT INFORMATION
  Report Type: Spontaneous
  Country: US (occurrence: US)
  Receive Date: 20140124
  Receipt Date: 20140124
  Transmission Date: 20141002
  Serious: No
  Sender: FDA-Public Use
  Company Number: US-GILEAD-2011-0037006

PATIENT
  Age: 76 Year
  Sex: Male

DRUGS (6)
  1. RANEXA [Suspect]
     Indication: ANGINA PECTORIS
  2. ATENOLOL [Concomitant]
     Indication: ANGINA PECTORIS
     Dates: start: 20080803
  3. CHLORTHALIDONE [Concomitant]
     Dates: start: 20101013
  4. CRESTOR [Concomitant]
     Indication: LIPIDS
     Dates: start: 20090305, end: 20110228
  5. LOSARTAN [Concomitant]
     Indication: HYPERTENSION
     Dates: start: 20101013
  6. NTG [Concomitant]
     Indication: ANGINA PECTORIS
     Dates: start: 20060102

REACTIONS (1)
  - Diplopia [Recovered/Resolved]
